FAERS Safety Report 9889677 (Version 1)
Quarter: 2014Q1

REPORT INFORMATION
  Report Type: Spontaneous
  Country: US (occurrence: US)
  Receive Date: 20140211
  Receipt Date: 20140211
  Transmission Date: 20141002
  Serious: No
  Sender: FDA-Public Use
  Company Number: US-PFIZER INC-2014036484

PATIENT
  Age: 71 Year
  Sex: Female
  Weight: 79.37 kg

DRUGS (7)
  1. FLECTOR [Suspect]
     Indication: PAIN
     Dosage: UNK
  2. ATENOLOL [Concomitant]
     Dosage: UNK
  3. HYDROCODONE [Concomitant]
     Dosage: UNK
  4. FLEXERIL [Concomitant]
     Dosage: UNK
  5. VESICARE [Concomitant]
     Dosage: UNK
  6. ZANTAC [Concomitant]
     Dosage: UNK
  7. XANAX [Concomitant]
     Dosage: UNK

REACTIONS (1)
  - Urticaria [Unknown]
